FAERS Safety Report 4327806-1 (Version None)
Quarter: 2004Q1

REPORT INFORMATION
  Report Type: 
  Country: None (occurrence: None)
  Receive Date: 20040325
  Receipt Date: 20040315
  Transmission Date: 20041129
  Serious: Yes (Hospitalization, Disabling)
  Sender: FDA-Public Use
  Company Number: OMPQ-PR-0403L-0189

PATIENT
  Age: 73 Year
  Sex: Female

DRUGS (1)
  1. OMNIPAQUE 240 [Suspect]
     Indication: SYNCOPE
     Dosage: SINGLE DOSE, I.A./SINGLE DOSE

REACTIONS (2)
  - BLINDNESS CORTICAL [None]
  - VISION BLURRED [None]
